FAERS Safety Report 10369742 (Version 2)
Quarter: 2014Q3

REPORT INFORMATION
  Report Type: Spontaneous
  Country: FR (occurrence: FR)
  Receive Date: 20140807
  Receipt Date: 20140920
  Transmission Date: 20150326
  Serious: Yes (Hospitalization)
  Sender: FDA-Public Use
  Company Number: FR-ABBVIE-14K-056-1268204-00

PATIENT
  Age: 60 Year
  Sex: Male

DRUGS (4)
  1. PREVISCAN [Concomitant]
     Active Substance: FLUINDIONE
     Indication: THROMBOSIS
     Dates: start: 20120207
  2. CORTANCYL [Suspect]
     Active Substance: PREDNISONE
     Indication: RHEUMATIC DISORDER
     Route: 048
     Dates: start: 2006, end: 201203
  3. METHOTREXATE [Suspect]
     Active Substance: METHOTREXATE
     Indication: RHEUMATIC DISORDER
     Route: 048
     Dates: start: 2006, end: 200603
  4. HUMIRA [Suspect]
     Active Substance: ADALIMUMAB
     Indication: RHEUMATIC DISORDER
     Dates: start: 2006, end: 20120207

REACTIONS (2)
  - Brain abscess [Recovered/Resolved]
  - VIIth nerve paralysis [Recovered/Resolved]

NARRATIVE: CASE EVENT DATE: 201203
